FAERS Safety Report 26127301 (Version 1)
Quarter: 2025Q4

REPORT INFORMATION
  Report Type: Spontaneous
  Country: CA (occurrence: CA)
  Receive Date: 20251205
  Receipt Date: 20251205
  Transmission Date: 20260118
  Serious: Yes (Other)
  Sender: PFIZER
  Company Number: CA-PFIZER INC-202500183887

PATIENT
  Age: 34 Year
  Sex: Female

DRUGS (2)
  1. ABRILADA [Suspect]
     Active Substance: ADALIMUMAB-AFZB
     Indication: Crohn^s disease
     Dosage: 40 MG, EVERY 2 WEEKS
     Route: 058
     Dates: start: 20250801, end: 2025
  2. ABRILADA [Suspect]
     Active Substance: ADALIMUMAB-AFZB
     Dosage: 40 MG, WEEKLY
     Route: 058
     Dates: start: 2025, end: 2025

REACTIONS (4)
  - Psoriatic arthropathy [Unknown]
  - Drug ineffective [Unknown]
  - Psoriasis [Unknown]
  - Off label use [Unknown]

NARRATIVE: CASE EVENT DATE: 20250101
